FAERS Safety Report 5853041-1 (Version None)
Quarter: 2008Q3

REPORT INFORMATION
  Report Type: 
  Country: None (occurrence: None)
  Receive Date: 20080814
  Receipt Date: 20080513
  Transmission Date: 20090109
  Serious: No
  Sender: FDA-Public Use
  Company Number: WAES 0805USA02922

PATIENT
  Age: 66 Year
  Sex: Male

DRUGS (5)
  1. ISENTRESS [Suspect]
     Indication: HIV INFECTION
     Dosage: 400 MG/BID/PO
     Route: 048
     Dates: start: 20080320
  2. SUSTIVA [Suspect]
     Dosage: PO
     Route: 048
  3. EPIVIR [Concomitant]
  4. PREZISTA [Concomitant]
  5. RITONAVIR [Concomitant]

REACTIONS (1)
  - BLOOD HIV RNA INCREASED [None]
